FAERS Safety Report 6902048-1 (Version None)
Quarter: 2010Q3

REPORT INFORMATION
  Report Type: 
  Country: None (occurrence: None)
  Receive Date: 20100803
  Receipt Date: 20080414
  Transmission Date: 20110219
  Serious: Yes (Other)
  Sender: FDA-Public Use
  Company Number: US-PFIZER INC-2008029505

PATIENT
  Sex: Female

DRUGS (8)
  1. LYRICA [Suspect]
  2. CYMBALTA [Concomitant]
  3. TEMAZEPAM [Concomitant]
  4. LIPITOR [Concomitant]
  5. SYNTHROID [Concomitant]
  6. PROMETHAZINE [Concomitant]
     Dates: start: 20071220, end: 20080120
  7. HYDROCODONE BITARTRATE [Concomitant]
     Dates: start: 20071220, end: 20080120
  8. DRUG, UNSPECIFIED [Concomitant]

REACTIONS (1)
  - CONJUNCTIVAL HAEMORRHAGE [None]
